FAERS Safety Report 10238551 (Version 1)
Quarter: 2014Q2

REPORT INFORMATION
  Report Type: Spontaneous
  Country: US (occurrence: None)
  Receive Date: 20140613
  Receipt Date: 20140613
  Transmission Date: 20141212
  Serious: Yes (Hospitalization)
  Sender: FDA-Public Use
  Company Number: None

PATIENT
  Age: 48 Year
  Sex: Male
  Weight: 90.7 kg

DRUGS (1)
  1. CETUXIMAB (ERBITUX) (714692) [Suspect]

REACTIONS (2)
  - Nausea [None]
  - Vomiting [None]
